FAERS Safety Report 14893875 (Version 2)
Quarter: 2018Q2

REPORT INFORMATION
  Report Type: Spontaneous
  Country: US (occurrence: US)
  Receive Date: 20180514
  Receipt Date: 20180524
  Transmission Date: 20180711
  Serious: Yes (Hospitalization)
  Sender: FDA-Public Use
  Company Number: US-ACTELION-A-NJ2018-172017

PATIENT
  Age: 45 Year
  Sex: Female
  Weight: 73.92 kg

DRUGS (5)
  1. VELETRI [Suspect]
     Active Substance: EPOPROSTENOL
     Indication: PULMONARY ARTERIAL HYPERTENSION
     Dosage: 40 NG/KG, PER MIN
     Route: 042
  2. TRACLEER [Concomitant]
     Active Substance: BOSENTAN
     Indication: PULMONARY ARTERIAL HYPERTENSION
  3. REMODULIN [Concomitant]
     Active Substance: TREPROSTINIL
     Dosage: 60 NG/KG, PER MIN
  4. WARFARIN [Concomitant]
     Active Substance: WARFARIN
  5. REVATIO [Concomitant]
     Active Substance: SILDENAFIL CITRATE

REACTIONS (5)
  - Complication associated with device [Unknown]
  - Pain in jaw [Unknown]
  - Pneumonia [Unknown]
  - Catheter site pain [Unknown]
  - Device related infection [Unknown]
